FAERS Safety Report 22209513 (Version 1)
Quarter: 2023Q2

REPORT INFORMATION
  Report Type: Spontaneous
  Country: FR (occurrence: FR)
  Receive Date: 20230414
  Receipt Date: 20230414
  Transmission Date: 20230721
  Serious: Yes (Life-Threatening, Other)
  Sender: FDA-Public Use
  Company Number: FR-RECORDATI-2023000024

PATIENT
  Age: 50 Year
  Sex: Female
  Weight: 59 kg

DRUGS (3)
  1. OXYCODONE [Suspect]
     Active Substance: OXYCODONE
     Indication: Cancer pain
     Dosage: 84 MILLIGRAM, ONCE A DAY
     Route: 042
     Dates: start: 20221215, end: 20230104
  2. METHADONE HYDROCHLORIDE [Suspect]
     Active Substance: METHADONE HYDROCHLORIDE
     Indication: Cancer pain
     Dosage: 100 MILLIGRAM, ONCE A DAY
     Route: 048
     Dates: start: 20230104, end: 20230201
  3. KETAMINE [Concomitant]
     Active Substance: KETAMINE
     Indication: Cancer pain
     Dosage: UNK
     Route: 065

REACTIONS (5)
  - Sepsis [Recovered/Resolved]
  - Dry mouth [Unknown]
  - Myoclonus [Recovered/Resolved]
  - Nausea [Recovered/Resolved]
  - Somnolence [Not Recovered/Not Resolved]

NARRATIVE: CASE EVENT DATE: 20230105
